FAERS Safety Report 19419052 (Version 1)
Quarter: 2021Q2

REPORT INFORMATION
  Report Type: Spontaneous
  Country: JP (occurrence: JP)
  Receive Date: 20210615
  Receipt Date: 20210615
  Transmission Date: 20210717
  Serious: Yes (Other)
  Sender: FDA-Public Use
  Company Number: JP-BAYER-2021-156794

PATIENT
  Age: 62 Year
  Sex: Male

DRUGS (6)
  1. SOTACOR [SOTALOL HYDROCHLORIDE] [Concomitant]
  2. STIVARGA [Suspect]
     Active Substance: REGORAFENIB
     Indication: RECTAL CANCER
     Dosage: 120MG/DAY(FROM 4TH COURSE)
     Dates: start: 202008, end: 202102
  3. HALFDIGOXIN [Concomitant]
     Active Substance: DIGOXIN
  4. STIVARGA [Suspect]
     Active Substance: REGORAFENIB
     Indication: RECTAL CANCER
     Dosage: 80MG/DAY
     Dates: start: 202008, end: 202102
  5. XARELTO [Concomitant]
     Active Substance: RIVAROXABAN
  6. BISONO [Concomitant]
     Active Substance: BISOPROLOL

REACTIONS (8)
  - C-reactive protein increased [None]
  - Diarrhoea [Recovering/Resolving]
  - Palmar-plantar erythrodysaesthesia syndrome [Recovering/Resolving]
  - Rectal cancer [None]
  - Metastases to liver [None]
  - Metastases to bone [None]
  - Blood bilirubin increased [None]
  - Off label use [None]
